FAERS Safety Report 6966728-4 (Version None)
Quarter: 2010Q3

REPORT INFORMATION
  Report Type: 
  Country: None (occurrence: None)
  Receive Date: 20100906
  Receipt Date: 20100823
  Transmission Date: 20110219
  Serious: Yes (Hospitalization)
  Sender: FDA-Public Use
  Company Number: GB-RANBAXY-2010RR-37707

PATIENT
  Age: 81 Year
  Sex: Male

DRUGS (14)
  1. SIMVASTATIN [Suspect]
     Dosage: 40 MG, UNK
     Route: 048
     Dates: start: 20100806, end: 20100809
  2. ADALAT [Concomitant]
     Dosage: 300 MG, QD
     Route: 048
     Dates: end: 20100806
  3. ASPIRIN [Concomitant]
     Dosage: 75 MG, QD
     Route: 048
     Dates: start: 20010213
  4. ATENOLOL [Concomitant]
     Dosage: 50 MG, UNK
     Route: 048
  5. CANDESARTAN CILEXETIL [Concomitant]
     Dosage: 8 MG, QD
     Route: 048
  6. CIMETIDINE [Concomitant]
     Dosage: 400 MG, QD
     Route: 048
     Dates: end: 20100802
  7. CLOPIDOGREL [Concomitant]
     Dosage: 75 MG, QD
     Route: 048
     Dates: start: 20100214
  8. FUROSEMIDE [Concomitant]
     Dosage: 40 MG, QD
     Route: 048
  9. GLIPIZIDE [Concomitant]
     Dosage: 10 MG, QD
     Route: 048
     Dates: start: 20081118
  10. HYDROXOCOBALAMIN [Concomitant]
  11. ACETAMINOPHEN [Concomitant]
     Dosage: 1 G, QID
     Route: 048
     Dates: start: 20080721
  12. QUININE SULFATE [Concomitant]
     Dosage: 200 MG, QD
     Route: 048
     Dates: start: 20100225
  13. RANITIDINE [Concomitant]
     Dosage: 300 MG, QD
     Route: 048
  14. MULTI-VITAMIN [Concomitant]
     Dosage: 1 DF, QD
     Route: 048

REACTIONS (3)
  - DECREASED APPETITE [None]
  - LIVER FUNCTION TEST ABNORMAL [None]
  - NAUSEA [None]
